FAERS Safety Report 25911839 (Version 1)
Quarter: 2025Q4

REPORT INFORMATION
  Report Type: Spontaneous
  Country: EU (occurrence: EU)
  Receive Date: 20251013
  Receipt Date: 20251013
  Transmission Date: 20260117
  Serious: Yes (Hospitalization, Other)
  Sender: AUROBINDO
  Company Number: EU-ABBVIE-6472782

PATIENT
  Age: 55 Year
  Sex: Male

DRUGS (4)
  1. AZACITIDINE [Suspect]
     Active Substance: AZACITIDINE
     Indication: Acute myeloid leukaemia
     Dosage: UNK
     Route: 065
     Dates: start: 20250621
  2. AZACITIDINE [Suspect]
     Active Substance: AZACITIDINE
     Dosage: FIRST ADMIN DATE: 2025 LAST ADMIN DATE 2025REDUCTION OF DOE
     Route: 065
  3. VENETOCLAX [Suspect]
     Active Substance: VENETOCLAX
     Indication: Acute myeloid leukaemia
     Dosage: LAST ADMIN DATE 2025
     Route: 048
     Dates: start: 20250621
  4. VENETOCLAX [Suspect]
     Active Substance: VENETOCLAX
     Dosage: FIRST ADMIN DATE: 2025LAST ADMIN DATE 2025 REDUCTION OF DOSE
     Route: 048

REACTIONS (5)
  - Febrile neutropenia [Recovering/Resolving]
  - Pancytopenia [Recovering/Resolving]
  - Mucosal inflammation [Recovering/Resolving]
  - Bone marrow disorder [Recovering/Resolving]
  - Graft versus host disease [Recovering/Resolving]

NARRATIVE: CASE EVENT DATE: 20250101
